FAERS Safety Report 17934950 (Version 6)
Quarter: 2021Q4

REPORT INFORMATION
  Report Type: Report from Study
  Country: KR (occurrence: KR)
  Receive Date: 20200624
  Receipt Date: 20211029
  Transmission Date: 20220303
  Serious: Yes (Death, Hospitalization, Other)
  Sender: FDA-Public Use
  Company Number: KR-JAZZ-2020-KR-008019

PATIENT
  Age: 3 Year
  Sex: Male
  Weight: 13.8 kg

DRUGS (10)
  1. DEFITELIO [Suspect]
     Active Substance: DEFIBROTIDE SODIUM
     Indication: Venoocclusive disease
     Dosage: 6.25 MILLIGRAM/KILOGRAM, QID
     Route: 042
     Dates: start: 20200610, end: 20200613
  2. DEFITELIO [Suspect]
     Active Substance: DEFIBROTIDE SODIUM
     Dosage: 6.25 MILLIGRAM/KILOGRAM, QID
     Route: 042
     Dates: start: 20200708, end: 20200718
  3. TAZOPERAN [Concomitant]
     Indication: Infection prophylaxis
     Dosage: 0.8 GRAM, TID
     Route: 042
     Dates: start: 20200609, end: 20200626
  4. MYCAMINE [Concomitant]
     Active Substance: MICAFUNGIN SODIUM
     Indication: Infection prophylaxis
     Dosage: 14 MILLIGRAM, QD
     Route: 042
     Dates: start: 20200512, end: 20200618
  5. URSODIOL [Concomitant]
     Active Substance: URSODIOL
     Indication: Prophylaxis
     Dosage: 100 MILLIGRAM, TID
     Route: 048
     Dates: start: 20200608
  6. ALOSTIN [ALPROSTADIL] [Concomitant]
     Indication: Prophylaxis
     Dosage: 25 MICROGRAM, QD
     Route: 042
     Dates: start: 20200506, end: 20200526
  7. TOCOPHEROL [Concomitant]
     Active Substance: TOCOPHEROL
     Indication: Pain prophylaxis
     Dosage: 50 MILLIGRAM, QD
     Route: 048
     Dates: start: 20200608, end: 20200725
  8. LEVETIRACETAM [Concomitant]
     Active Substance: LEVETIRACETAM
     Indication: Seizure prophylaxis
     Dosage: 140 MILLIGRAM, BID
     Route: 042
     Dates: start: 20200706, end: 20200722
  9. HUMAN IMMUNOGLOBULIN G [Concomitant]
     Active Substance: HUMAN IMMUNOGLOBULIN G
     Indication: Product used for unknown indication
     Dosage: UNK
     Route: 042
     Dates: start: 20200725, end: 20200725
  10. GANCICLOVIR [Concomitant]
     Active Substance: GANCICLOVIR
     Indication: Product used for unknown indication
     Dosage: UNK
     Route: 042
     Dates: start: 20200718, end: 20200725

REACTIONS (8)
  - Pulmonary haemorrhage [Fatal]
  - Pulmonary interstitial emphysema syndrome [Unknown]
  - Cardiogenic shock [Unknown]
  - Respiratory failure [Unknown]
  - Sepsis [Unknown]
  - Renal haematoma [Recovered/Resolved]
  - Pneumonia adenoviral [Fatal]
  - Acute graft versus host disease [Recovered/Resolved]

NARRATIVE: CASE EVENT DATE: 20200101
